FAERS Safety Report 10584813 (Version 1)
Quarter: 2014Q4

REPORT INFORMATION
  Report Type: Spontaneous
  Country: US (occurrence: None)
  Receive Date: 20141113
  Receipt Date: 20141113
  Transmission Date: 20150529
  Serious: Yes (Hospitalization)
  Sender: FDA-Public Use
  Company Number: US-ZYDUS-005438

PATIENT
  Age: 63 Year
  Sex: Male

DRUGS (2)
  1. ASPIRIN (ASPIRIN) [Suspect]
     Active Substance: ASPIRIN
  2. CLOPIDOGREL [Suspect]
     Active Substance: CLOPIDOGREL BISULFATE

REACTIONS (6)
  - Hypertensive crisis [None]
  - Weight decreased [None]
  - Renal embolism [None]
  - Thrombotic thrombocytopenic purpura [None]
  - Haemoglobin decreased [None]
  - Proteinuria [None]
